FAERS Safety Report 6411662-1 (Version None)
Quarter: 2009Q4

REPORT INFORMATION
  Report Type: 
  Country: None (occurrence: None)
  Receive Date: 20091023
  Receipt Date: 20091012
  Transmission Date: 20100525
  Serious: No
  Sender: FDA-Public Use
  Company Number: GR-ROCHE-661524

PATIENT
  Age: 70 Year
  Sex: Female

DRUGS (6)
  1. BONIVA [Suspect]
     Indication: OSTEOPOROSIS
     Route: 048
     Dates: start: 20070801, end: 20090901
  2. PREZOLON [Concomitant]
     Indication: RHEUMATOID ARTHRITIS
     Dates: start: 19990101
  3. METHOTREXATE [Concomitant]
     Indication: RHEUMATOID ARTHRITIS
     Dates: start: 19990101
  4. KINERET [Concomitant]
     Indication: RHEUMATOID ARTHRITIS
     Dates: start: 20060101
  5. PARIET [Concomitant]
     Indication: PROPHYLAXIS
     Dosage: DRUG NAME REPORTED AS PARIET TABS 20MG
     Route: 048
  6. COAPROVEL [Concomitant]
     Indication: HYPERTENSION
     Route: 048

REACTIONS (1)
  - ATRIAL FIBRILLATION [None]
